FAERS Safety Report 24672663 (Version 1)
Quarter: 2024Q4

REPORT INFORMATION
  Report Type: Spontaneous
  Country: US (occurrence: US)
  Receive Date: 20241127
  Receipt Date: 20241127
  Transmission Date: 20250114
  Serious: Yes (Hospitalization, Other)
  Sender: NOVITIUM PHARMA
  Company Number: US-NOVITIUMPHARMA-2024USNVP02676

PATIENT
  Age: 15 Year
  Sex: Male

DRUGS (10)
  1. PREDNISONE [Suspect]
     Active Substance: PREDNISONE
     Indication: Drug reaction with eosinophilia and systemic symptoms
     Route: 048
  2. PREDNISONE [Suspect]
     Active Substance: PREDNISONE
     Dosage: DOSE WAS INCREASED
  3. PREDNISONE [Suspect]
     Active Substance: PREDNISONE
     Dosage: DOSE TAPERING AND WITHDRAWAL
  4. ISRADIPINE [Concomitant]
     Active Substance: ISRADIPINE
     Indication: Hypertension
  5. AMLODIPINE [Concomitant]
     Active Substance: AMLODIPINE BESYLATE
     Indication: Hypertension
  6. CEFTRIAXONE [Concomitant]
     Active Substance: CEFTRIAXONE
  7. AMOXICILLIN [Concomitant]
     Active Substance: AMOXICILLIN
  8. MINOCYCLINE [Concomitant]
     Active Substance: MINOCYCLINE HYDROCHLORIDE
     Indication: Acne
  9. VANCOMYCIN [Concomitant]
     Active Substance: VANCOMYCIN
     Indication: Evidence based treatment
  10. CLINDAMYCIN [Concomitant]
     Active Substance: CLINDAMYCIN
     Indication: Evidence based treatment

REACTIONS (3)
  - Tubulointerstitial nephritis [Recovering/Resolving]
  - Drug-induced liver injury [Recovering/Resolving]
  - Rebound effect [Unknown]
